FAERS Safety Report 6774150-9 (Version None)
Quarter: 2010Q2

REPORT INFORMATION
  Report Type: 
  Country: None (occurrence: None)
  Receive Date: 20100616
  Receipt Date: 20100616
  Transmission Date: 20101027
  Serious: Yes (Hospitalization)
  Sender: FDA-Public Use
  Company Number: None

PATIENT
  Age: 20 Year
  Sex: Male

DRUGS (2)
  1. VIMPAT [Suspect]
     Indication: CONVULSION
     Dosage: 100MG TWICE DAILY PO
     Route: 048
     Dates: start: 20100601, end: 20100614
  2. TEGRETOL [Concomitant]

REACTIONS (1)
  - GRAND MAL CONVULSION [None]
